FAERS Safety Report 16841326 (Version 1)
Quarter: 2019Q3

REPORT INFORMATION
  Report Type: Spontaneous
  Country: US (occurrence: US)
  Receive Date: 20190801
  Receipt Date: 20190801
  Transmission Date: 20191005
  Serious: No
  Sender: FDA-Public Use
  Company Number: None

PATIENT
  Age: 29 Year
  Sex: Female

DRUGS (1)
  1. ENBREL [Suspect]
     Active Substance: ETANERCEPT
     Dates: start: 2015

REACTIONS (4)
  - Nasopharyngitis [None]
  - Stress [None]
  - Rheumatoid arthritis [None]
  - Joint stiffness [None]

NARRATIVE: CASE EVENT DATE: 20190801
